FAERS Safety Report 9511255 (Version 2)
Quarter: 2013Q4

REPORT INFORMATION
  Report Type: Spontaneous
  Country: JP (occurrence: JP)
  Receive Date: 20130910
  Receipt Date: 20131008
  Transmission Date: 20140711
  Serious: Yes (Other)
  Sender: FDA-Public Use
  Company Number: JP-JNJFOC-20130903029

PATIENT
  Age: 88 Year
  Sex: Female
  Weight: 35 kg

DRUGS (3)
  1. XARELTO [Suspect]
     Indication: CEREBROVASCULAR ACCIDENT PROPHYLAXIS
     Route: 048
     Dates: start: 20130711
  2. XARELTO [Suspect]
     Indication: ATRIAL FIBRILLATION
     Route: 048
     Dates: start: 20130711
  3. NIFEDIPINE ER [Concomitant]
     Dosage: ONCE IN THE MORNING
     Route: 048
     Dates: start: 20130613

REACTIONS (1)
  - Cerebral infarction [Recovered/Resolved with Sequelae]
